FAERS Safety Report 9129828 (Version 1)
Quarter: 2013Q1

REPORT INFORMATION
  Report Type: Spontaneous
  Country: TR (occurrence: TR)
  Receive Date: 20130228
  Receipt Date: 20130228
  Transmission Date: 20140127
  Serious: Yes (Hospitalization)
  Sender: FDA-Public Use
  Company Number: TR-ROXANE LABORATORIES, INC.-2013-RO-00291RO

PATIENT
  Age: 32 Year
  Sex: Female

DRUGS (2)
  1. RISPERIDONE [Suspect]
     Indication: SCHIZOPHRENIA, PARANOID TYPE
     Dosage: 6 MG
  2. RISPERIDONE [Suspect]
     Dosage: 2 MG

REACTIONS (2)
  - Acromegaly [Recovered/Resolved]
  - Pituitary tumour benign [Recovered/Resolved]
